FAERS Safety Report 7864759-3 (Version None)
Quarter: 2011Q4

REPORT INFORMATION
  Report Type: 
  Country: None (occurrence: None)
  Receive Date: 20111028
  Receipt Date: 20111017
  Transmission Date: 20120403
  Serious: Yes (Other)
  Sender: FDA-Public Use
  Company Number: US-ELI_LILLY_AND_COMPANY-US201110004907

PATIENT
  Age: 45 Year
  Sex: Male
  Weight: 63.492 kg

DRUGS (2)
  1. STRATTERA [Suspect]
     Indication: ATTENTION DEFICIT/HYPERACTIVITY DISORDER
     Dosage: 10 MG, QD
  2. LAMICTAL [Concomitant]
     Dosage: 250 MG, QD

REACTIONS (2)
  - DRUG INTOLERANCE [None]
  - DYSSTASIA [None]
